FAERS Safety Report 20076379 (Version 2)
Quarter: 2022Q4

REPORT INFORMATION
  Report Type: Spontaneous
  Country: CA (occurrence: CA)
  Receive Date: 20211116
  Receipt Date: 20221013
  Transmission Date: 20230113
  Serious: Yes (Hospitalization, Disabling, Other)
  Sender: FDA-Public Use
  Company Number: CA-NOVARTISPH-NVSC2021CA261823

PATIENT
  Age: 58 Year
  Sex: Female
  Weight: 90 kg

DRUGS (194)
  1. ERELZI [Suspect]
     Active Substance: ETANERCEPT-SZZS
     Indication: Rheumatoid arthritis
     Dosage: 25 MG, QW
     Route: 065
  2. ERELZI [Suspect]
     Active Substance: ETANERCEPT-SZZS
     Dosage: 50 MG, QW
     Route: 065
  3. ERELZI [Suspect]
     Active Substance: ETANERCEPT-SZZS
     Dosage: 25 MG, Q2W
     Route: 065
  4. ADALIMUMAB [Suspect]
     Active Substance: ADALIMUMAB
     Indication: Rheumatoid arthritis
     Dosage: 40 MG (SOLUTION)
     Route: 058
  5. ADALIMUMAB [Suspect]
     Active Substance: ADALIMUMAB
     Dosage: 40 MG, QW
     Route: 058
  6. HYDROXYCHLOROQUINE [Suspect]
     Active Substance: HYDROXYCHLOROQUINE
     Indication: Rheumatoid arthritis
     Dosage: 20 MG, QD
     Route: 048
  7. HYDROXYCHLOROQUINE [Suspect]
     Active Substance: HYDROXYCHLOROQUINE
     Dosage: 200 MG, QD
     Route: 048
  8. HYDROXYCHLOROQUINE [Suspect]
     Active Substance: HYDROXYCHLOROQUINE
     Dosage: UNK
     Route: 065
  9. HYDROXYCHLOROQUINE [Suspect]
     Active Substance: HYDROXYCHLOROQUINE
     Dosage: UNK
     Route: 048
  10. ETANERCEPT [Suspect]
     Active Substance: ETANERCEPT
     Indication: Rheumatoid arthritis
     Dosage: 50 MG, QW
     Route: 065
  11. LEFLUNOMIDE [Suspect]
     Active Substance: LEFLUNOMIDE
     Indication: Rheumatoid arthritis
     Dosage: 20 MG (4 YEARS)
     Route: 048
  12. LEFLUNOMIDE [Suspect]
     Active Substance: LEFLUNOMIDE
     Dosage: 380 MG
     Route: 048
  13. LEFLUNOMIDE [Suspect]
     Active Substance: LEFLUNOMIDE
     Dosage: UNK
     Route: 065
  14. LEFLUNOMIDE [Suspect]
     Active Substance: LEFLUNOMIDE
     Dosage: 500 MG
     Route: 048
  15. METHOTREXATE [Suspect]
     Active Substance: METHOTREXATE
     Indication: Rheumatoid arthritis
     Dosage: 12 MG, Q4W
     Route: 065
  16. METHOTREXATE [Suspect]
     Active Substance: METHOTREXATE
     Dosage: 70 MG, QW
     Route: 058
  17. METHOTREXATE [Suspect]
     Active Substance: METHOTREXATE
     Dosage: 17.5 MG, Q4W
     Route: 058
  18. METHOTREXATE [Suspect]
     Active Substance: METHOTREXATE
     Dosage: 12.5 MG, QW
     Route: 065
  19. METHOTREXATE [Suspect]
     Active Substance: METHOTREXATE
     Dosage: 12 MG, QW
     Route: 058
  20. METHOTREXATE [Suspect]
     Active Substance: METHOTREXATE
     Dosage: 10 MG, QW
     Route: 058
  21. METHOTREXATE [Suspect]
     Active Substance: METHOTREXATE
     Dosage: 17.5 MG, QW
     Route: 058
  22. METHOTREXATE [Suspect]
     Active Substance: METHOTREXATE
     Dosage: 10 MG, QW
     Route: 058
  23. METHOTREXATE [Suspect]
     Active Substance: METHOTREXATE
     Dosage: 10 MG, Q4W
     Route: 058
  24. METHOTREXATE [Suspect]
     Active Substance: METHOTREXATE
     Dosage: 15 MG, Q4W
     Route: 058
  25. METHOTREXATE [Suspect]
     Active Substance: METHOTREXATE
     Dosage: 10 MG, Q4W
     Route: 058
  26. METHOTREXATE [Suspect]
     Active Substance: METHOTREXATE
     Dosage: 15 MG, Q4W
     Route: 058
  27. METHOTREXATE [Suspect]
     Active Substance: METHOTREXATE
     Dosage: UNK, QW
     Route: 058
  28. RITUXIMAB [Suspect]
     Active Substance: RITUXIMAB
     Indication: Rheumatoid arthritis
     Dosage: 1000 MG, BID
     Route: 042
  29. RITUXIMAB [Suspect]
     Active Substance: RITUXIMAB
     Dosage: 1000 MG, BID (12 MONTHS)
     Route: 042
  30. RITUXIMAB [Suspect]
     Active Substance: RITUXIMAB
     Dosage: 1000 MG, QD
     Route: 065
  31. RITUXIMAB [Suspect]
     Active Substance: RITUXIMAB
     Dosage: 1000 MG, QD
     Route: 042
  32. RITUXIMAB [Suspect]
     Active Substance: RITUXIMAB
     Dosage: 1000 MG, BID
     Route: 065
  33. RITUXIMAB [Suspect]
     Active Substance: RITUXIMAB
     Dosage: 1000 MG
     Route: 065
  34. RITUXIMAB [Suspect]
     Active Substance: RITUXIMAB
     Dosage: 1000 MG, BID
     Route: 042
  35. RITUXIMAB [Suspect]
     Active Substance: RITUXIMAB
     Dosage: 1000 MG, BID
     Route: 042
  36. RITUXIMAB [Suspect]
     Active Substance: RITUXIMAB
     Dosage: 1000 MG, BID
     Route: 042
  37. RITUXIMAB [Suspect]
     Active Substance: RITUXIMAB
     Dosage: 1000 MG, BID
     Route: 041
  38. ALENDRONATE SODIUM [Suspect]
     Active Substance: ALENDRONATE SODIUM
     Indication: Rheumatoid arthritis
     Dosage: 70 MG, QW (TABLET)
     Route: 048
  39. ALENDRONATE SODIUM [Suspect]
     Active Substance: ALENDRONATE SODIUM
     Dosage: 70 MG, QW
     Route: 058
  40. ALENDRONATE SODIUM [Suspect]
     Active Substance: ALENDRONATE SODIUM
     Dosage: 70 MG, QW
     Route: 065
  41. ALENDRONATE SODIUM [Suspect]
     Active Substance: ALENDRONATE SODIUM
     Dosage: 70 MG
     Route: 065
  42. ALENDRONATE SODIUM [Suspect]
     Active Substance: ALENDRONATE SODIUM
     Dosage: 70 MG, QW
     Route: 065
  43. ACTEMRA [Suspect]
     Active Substance: TOCILIZUMAB
     Indication: Rheumatoid arthritis
     Dosage: 680 MG, Q4W (7 MONTHS)
     Route: 042
  44. ACTEMRA [Suspect]
     Active Substance: TOCILIZUMAB
     Dosage: 360 MG, QMO (3 YEARS)
     Route: 042
  45. ACTEMRA [Suspect]
     Active Substance: TOCILIZUMAB
     Dosage: 2.68 MG, Q4W
     Route: 042
  46. ACTEMRA [Suspect]
     Active Substance: TOCILIZUMAB
     Dosage: 360 MG, QMO
     Route: 065
  47. ACTEMRA [Suspect]
     Active Substance: TOCILIZUMAB
     Dosage: 680 MG, Q4W
     Route: 065
  48. ACTEMRA [Suspect]
     Active Substance: TOCILIZUMAB
     Dosage: 360 MG
     Route: 065
  49. ACTEMRA [Suspect]
     Active Substance: TOCILIZUMAB
     Dosage: 360 MG, QMO
     Route: 042
  50. ACTEMRA [Suspect]
     Active Substance: TOCILIZUMAB
     Dosage: 680 MG, QW
     Route: 065
  51. ACTEMRA [Suspect]
     Active Substance: TOCILIZUMAB
     Dosage: 680 MG
     Route: 042
  52. ACTEMRA [Suspect]
     Active Substance: TOCILIZUMAB
     Dosage: 360 MG, QW
     Route: 065
  53. ACTEMRA [Suspect]
     Active Substance: TOCILIZUMAB
     Dosage: 2.68 MG
     Route: 065
  54. ACTEMRA [Suspect]
     Active Substance: TOCILIZUMAB
     Dosage: 680 MG, QMO
     Route: 065
  55. APREMILAST [Suspect]
     Active Substance: APREMILAST
     Indication: Rheumatoid arthritis
     Dosage: 60 MG, 2 EVERY 1 DAYS
     Route: 065
  56. APREMILAST [Suspect]
     Active Substance: APREMILAST
     Indication: Psoriatic arthropathy
     Dosage: UNK
     Route: 065
  57. APREMILAST [Suspect]
     Active Substance: APREMILAST
     Indication: Psoriasis
  58. ALENDRONIC ACID [Suspect]
     Active Substance: ALENDRONIC ACID
     Indication: Product used for unknown indication
     Dosage: 70 MG, QW
     Route: 065
  59. IBUPROFEN [Suspect]
     Active Substance: IBUPROFEN
     Indication: Product used for unknown indication
     Dosage: UNK
     Route: 048
  60. LEFLUNOMIDE [Suspect]
     Active Substance: LEFLUNOMIDE
     Indication: Rheumatoid arthritis
     Dosage: 20 MG
     Route: 065
  61. LEFLUNOMIDE [Suspect]
     Active Substance: LEFLUNOMIDE
     Dosage: 500 MG
     Route: 048
  62. LEFLUNOMIDE [Suspect]
     Active Substance: LEFLUNOMIDE
     Dosage: 380 MG
     Route: 048
  63. LEFLUNOMIDE [Suspect]
     Active Substance: LEFLUNOMIDE
     Dosage: 500 MG
     Route: 048
  64. LEFLUNOMIDE [Suspect]
     Active Substance: LEFLUNOMIDE
     Dosage: UNK
     Route: 048
  65. LEFLUNOMIDE [Suspect]
     Active Substance: LEFLUNOMIDE
     Dosage: 20 MG
     Route: 065
  66. LEFLUNOMIDE [Suspect]
     Active Substance: LEFLUNOMIDE
     Dosage: UNK
     Route: 065
  67. LEFLUNOMIDE [Suspect]
     Active Substance: LEFLUNOMIDE
     Dosage: 20 MG
     Route: 048
  68. ARAVA [Suspect]
     Active Substance: LEFLUNOMIDE
     Indication: Product used for unknown indication
     Dosage: 20 MG, QD
     Route: 065
  69. ARAVA [Suspect]
     Active Substance: LEFLUNOMIDE
     Dosage: UNK
     Route: 065
  70. AZATHIOPRINE [Suspect]
     Active Substance: AZATHIOPRINE
     Indication: Product used for unknown indication
     Dosage: UNK
     Route: 065
  71. CELEBREX [Suspect]
     Active Substance: CELECOXIB
     Indication: Rheumatoid arthritis
     Dosage: UNK
     Route: 065
  72. CIMZIA [Suspect]
     Active Substance: CERTOLIZUMAB PEGOL
     Indication: Psoriatic arthropathy
     Dosage: UNK
     Route: 058
  73. CODEINE SULFATE [Suspect]
     Active Substance: CODEINE SULFATE
     Indication: Product used for unknown indication
     Dosage: UNK
     Route: 065
  74. ENBREL [Suspect]
     Active Substance: ETANERCEPT
     Indication: Rheumatoid arthritis
     Dosage: 250 MG, BIW (147 DAYS)
     Route: 065
  75. ENBREL [Suspect]
     Active Substance: ETANERCEPT
     Dosage: 25 MG, QW
     Route: 065
  76. ENBREL [Suspect]
     Active Substance: ETANERCEPT
     Dosage: 25 MG, Q2W
     Route: 065
  77. ENBREL [Suspect]
     Active Substance: ETANERCEPT
     Dosage: 50 MG
     Route: 065
  78. ENBREL [Suspect]
     Active Substance: ETANERCEPT
     Dosage: 25 MG, QW
     Route: 065
  79. ENBREL [Suspect]
     Active Substance: ETANERCEPT
     Dosage: 50 MG, QW
     Route: 065
  80. ENBREL [Suspect]
     Active Substance: ETANERCEPT
     Dosage: UNK
     Route: 058
  81. ENBREL [Suspect]
     Active Substance: ETANERCEPT
     Dosage: 25 MG
     Route: 065
  82. ENBREL [Suspect]
     Active Substance: ETANERCEPT
     Dosage: 25 MG, BIW
     Route: 065
  83. ENBREL [Suspect]
     Active Substance: ETANERCEPT
     Dosage: 50 MG, QW
     Route: 065
  84. ENBREL [Suspect]
     Active Substance: ETANERCEPT
     Dosage: 25 MG, QW
     Route: 058
  85. ENBREL [Suspect]
     Active Substance: ETANERCEPT
     Dosage: 25 MG, QW
     Route: 058
  86. ENBREL [Suspect]
     Active Substance: ETANERCEPT
     Dosage: 25 MG, QW
     Route: 065
  87. HYDROXYCHLOROQUINE SULFATE [Suspect]
     Active Substance: HYDROXYCHLOROQUINE SULFATE
     Indication: Rheumatoid arthritis
     Dosage: 20 MG
     Route: 048
  88. HYDROXYCHLOROQUINE SULFATE [Suspect]
     Active Substance: HYDROXYCHLOROQUINE SULFATE
     Dosage: UNK
     Route: 048
  89. HYDROXYCHLOROQUINE SULFATE [Suspect]
     Active Substance: HYDROXYCHLOROQUINE SULFATE
     Dosage: 680 MG
     Route: 065
  90. HYDROXYCHLOROQUINE SULFATE [Suspect]
     Active Substance: HYDROXYCHLOROQUINE SULFATE
     Dosage: 200 MG
     Route: 048
  91. HYDROXYCHLOROQUINE SULFATE [Suspect]
     Active Substance: HYDROXYCHLOROQUINE SULFATE
     Dosage: 360 MG, QMO
     Route: 065
  92. HYDROXYCHLOROQUINE SULFATE [Suspect]
     Active Substance: HYDROXYCHLOROQUINE SULFATE
     Dosage: 20 MG, QD
     Route: 048
  93. HUMIRA [Suspect]
     Active Substance: ADALIMUMAB
     Indication: Rheumatoid arthritis
     Dosage: 40 MG, Q2W (211 DAYS), SOLUTION
     Route: 058
  94. HUMIRA [Suspect]
     Active Substance: ADALIMUMAB
     Dosage: 40 MG, Q2W (SOLUTION FOR INJECTION IN PRE-FILLED SYRINGE)
     Route: 058
  95. HUMIRA [Suspect]
     Active Substance: ADALIMUMAB
     Dosage: 40 MG
     Route: 058
  96. HUMIRA [Suspect]
     Active Substance: ADALIMUMAB
     Dosage: 40 MG, BIW
     Route: 058
  97. HUMIRA [Suspect]
     Active Substance: ADALIMUMAB
     Dosage: 40 MG, QW
     Route: 058
  98. HUMIRA [Suspect]
     Active Substance: ADALIMUMAB
     Dosage: 40 MG, CYCLIC (SOLUTION)
     Route: 058
  99. INFLIXIMAB [Suspect]
     Active Substance: INFLIXIMAB
     Indication: Rheumatoid arthritis
     Dosage: UNK
     Route: 042
  100. INFLIXIMAB [Suspect]
     Active Substance: INFLIXIMAB
     Indication: Psoriatic arthropathy
     Dosage: UNK
     Route: 048
  101. INFLIXIMAB [Suspect]
     Active Substance: INFLIXIMAB
     Dosage: UNK
     Route: 042
  102. METHOTREXATE [Suspect]
     Active Substance: METHOTREXATE
     Indication: Rheumatoid arthritis
     Dosage: 10 MG, QW
     Route: 058
  103. METHOTREXATE [Suspect]
     Active Substance: METHOTREXATE
     Dosage: 10 MG, Q4W
     Route: 048
  104. METHOTREXATE [Suspect]
     Active Substance: METHOTREXATE
     Dosage: 15 MG, QW
     Route: 058
  105. METHOTREXATE [Suspect]
     Active Substance: METHOTREXATE
     Dosage: 10 MG, QW
     Route: 058
  106. METHOTREXATE [Suspect]
     Active Substance: METHOTREXATE
     Dosage: 70 MG, QW
     Route: 058
  107. METHOTREXATE [Suspect]
     Active Substance: METHOTREXATE
     Dosage: 17.5 MG, QW
     Route: 058
  108. METHOTREXATE [Suspect]
     Active Substance: METHOTREXATE
     Dosage: 12 MG, QW
     Route: 058
  109. METHOTREXATE [Suspect]
     Active Substance: METHOTREXATE
     Dosage: 12.5 MG, QW
     Route: 048
  110. METHOTREXATE [Suspect]
     Active Substance: METHOTREXATE
     Dosage: 10 MG, QW
     Route: 048
  111. METHOTREXATE [Suspect]
     Active Substance: METHOTREXATE
     Dosage: 12.5 MG, QW
     Route: 058
  112. METHOTREXATE [Suspect]
     Active Substance: METHOTREXATE
     Dosage: 10 MG, QW
     Route: 048
  113. METHOTREXATE [Suspect]
     Active Substance: METHOTREXATE
     Dosage: 25 MG, QW
     Route: 048
  114. METHOTREXATE [Suspect]
     Active Substance: METHOTREXATE
     Dosage: 12 MG, QW
     Route: 065
  115. METHOTREXATE [Suspect]
     Active Substance: METHOTREXATE
     Dosage: 15 MG
     Route: 058
  116. METHOTREXATE [Suspect]
     Active Substance: METHOTREXATE
     Dosage: 12.5 MG
     Route: 058
  117. METHOTREXATE [Suspect]
     Active Substance: METHOTREXATE
     Dosage: 10 MG
     Route: 065
  118. METHOTREXATE [Suspect]
     Active Substance: METHOTREXATE
     Dosage: 12.5 MG, QW
     Route: 058
  119. METHOTREXATE [Suspect]
     Active Substance: METHOTREXATE
     Dosage: 12.5 MG, QW
     Route: 065
  120. METHOTREXATE [Suspect]
     Active Substance: METHOTREXATE
     Dosage: 12 MG
     Route: 065
  121. METHOTREXATE [Suspect]
     Active Substance: METHOTREXATE
     Dosage: 70 MG, QW
     Route: 058
  122. METHOTREXATE [Suspect]
     Active Substance: METHOTREXATE
     Dosage: 12 MG, QW
     Route: 065
  123. METHOTREXATE [Suspect]
     Active Substance: METHOTREXATE
     Dosage: 17.5 MG
     Route: 065
  124. METHOTREXATE [Suspect]
     Active Substance: METHOTREXATE
     Dosage: 15 MG, QW
     Route: 058
  125. METHOTREXATE [Suspect]
     Active Substance: METHOTREXATE
     Dosage: 12 MG, QW
     Route: 058
  126. METHOTREXATE [Suspect]
     Active Substance: METHOTREXATE
     Dosage: 17.5 MG, QW
     Route: 058
  127. METHOTREXATE [Suspect]
     Active Substance: METHOTREXATE
     Dosage: 12 MG
     Route: 065
  128. METHOTREXATE [Suspect]
     Active Substance: METHOTREXATE
     Dosage: 10 MG
     Route: 065
  129. METHOTREXATE [Suspect]
     Active Substance: METHOTREXATE
     Dosage: 10 MG, QW
     Route: 048
  130. METHOTREXATE [Suspect]
     Active Substance: METHOTREXATE
     Dosage: 10 MG, BIW
     Route: 065
  131. METHOTREXATE [Suspect]
     Active Substance: METHOTREXATE
     Dosage: 10 MG, QW
     Route: 058
  132. METHOTREXATE [Suspect]
     Active Substance: METHOTREXATE
     Dosage: 10 MG, QW
     Route: 058
  133. METHOTREXATE [Suspect]
     Active Substance: METHOTREXATE
     Dosage: 17.5 MG, QW
     Route: 058
  134. METHOTREXATE [Suspect]
     Active Substance: METHOTREXATE
     Dosage: 10 MG, BIW
     Route: 058
  135. METHOTREXATE [Suspect]
     Active Substance: METHOTREXATE
     Dosage: 12.5 MG, QW
     Route: 065
  136. METHOTREXATE [Suspect]
     Active Substance: METHOTREXATE
     Dosage: 15 MG, QW
     Route: 058
  137. METHOTREXATE [Suspect]
     Active Substance: METHOTREXATE
     Dosage: UNK, QW
     Route: 065
  138. MYOCHRYSINE [Suspect]
     Active Substance: GOLD SODIUM THIOMALATE
     Indication: Rheumatoid arthritis
     Dosage: 50 MG, Q2W
     Route: 030
  139. MYOCHRYSINE [Suspect]
     Active Substance: GOLD SODIUM THIOMALATE
     Dosage: 50 MG, QMO
     Route: 030
  140. MYOCHRYSINE [Suspect]
     Active Substance: GOLD SODIUM THIOMALATE
     Dosage: 25 MG, QW
     Route: 030
  141. MYOCHRYSINE [Suspect]
     Active Substance: GOLD SODIUM THIOMALATE
     Dosage: 50 MG, QMO (SOLUTION)
     Route: 051
  142. MYOCHRYSINE [Suspect]
     Active Substance: GOLD SODIUM THIOMALATE
     Dosage: 50 MG, QW
     Route: 030
  143. MYOCHRYSINE [Suspect]
     Active Substance: GOLD SODIUM THIOMALATE
     Dosage: 50 MG, QMO
     Route: 058
  144. MYOCHRYSINE [Suspect]
     Active Substance: GOLD SODIUM THIOMALATE
     Dosage: 50 MG, QMO
     Route: 030
  145. MYOCHRYSINE [Suspect]
     Active Substance: GOLD SODIUM THIOMALATE
     Dosage: 25 MG, QW
     Route: 030
  146. MYOCHRYSINE [Suspect]
     Active Substance: GOLD SODIUM THIOMALATE
     Dosage: 50 MG, QMO
     Route: 065
  147. MYOCHRYSINE [Suspect]
     Active Substance: GOLD SODIUM THIOMALATE
     Dosage: 10 MG
     Route: 065
  148. NAPROXEN [Suspect]
     Active Substance: NAPROXEN
     Indication: Product used for unknown indication
     Dosage: UNK
     Route: 065
  149. IBUPROFEN [Suspect]
     Active Substance: IBUPROFEN
     Indication: Product used for unknown indication
     Dosage: 600 MG, QD
     Route: 048
  150. ORENCIA [Suspect]
     Active Substance: ABATACEPT
     Indication: Rheumatoid arthritis
     Dosage: 760 MG, QW
     Route: 065
  151. ORENCIA [Suspect]
     Active Substance: ABATACEPT
     Dosage: 780 MG, QW
     Route: 042
  152. ORENCIA [Suspect]
     Active Substance: ABATACEPT
     Dosage: 780 MG, QW
     Route: 065
  153. ORENCIA [Suspect]
     Active Substance: ABATACEPT
     Dosage: 780 MG, QW
     Route: 065
  154. ORENCIA [Suspect]
     Active Substance: ABATACEPT
     Dosage: 760 MG, QW
     Route: 042
  155. ORENCIA [Suspect]
     Active Substance: ABATACEPT
     Dosage: UNK
     Route: 058
  156. ORENCIA [Suspect]
     Active Substance: ABATACEPT
     Dosage: UNK
     Route: 042
  157. ORENCIA [Suspect]
     Active Substance: ABATACEPT
     Dosage: UNK
     Route: 065
  158. REMICADE [Suspect]
     Active Substance: INFLIXIMAB
     Indication: Rheumatoid arthritis
     Dosage: UNK (365)
     Route: 042
  159. REMICADE [Suspect]
     Active Substance: INFLIXIMAB
     Dosage: UNK
     Route: 065
  160. SIMPONI [Suspect]
     Active Substance: GOLIMUMAB
     Indication: Psoriatic arthropathy
     Dosage: 360 MG, QMO (SOLUTION SUBCUTANEOUS)
     Route: 058
  161. SIMPONI [Suspect]
     Active Substance: GOLIMUMAB
     Dosage: 680 MG, QMO
     Route: 058
  162. SIMPONI [Suspect]
     Active Substance: GOLIMUMAB
     Dosage: UNK
     Route: 058
  163. SULFASALAZINE [Suspect]
     Active Substance: SULFASALAZINE
     Indication: Rheumatoid arthritis
     Dosage: 500 MG
     Route: 065
  164. SULFASALAZINE [Suspect]
     Active Substance: SULFASALAZINE
     Dosage: 500 MG
     Route: 065
  165. SULFASALAZINE [Suspect]
     Active Substance: SULFASALAZINE
     Dosage: 500 MG
     Route: 005
  166. SULFASALAZINE [Suspect]
     Active Substance: SULFASALAZINE
     Dosage: UNK
     Route: 065
  167. SULFASALAZINE [Suspect]
     Active Substance: SULFASALAZINE
     Dosage: UNK
     Route: 005
  168. STELARA [Suspect]
     Active Substance: USTEKINUMAB
     Indication: Psoriatic arthropathy
     Dosage: UNK
     Route: 058
  169. TOCILIZUMAB [Suspect]
     Active Substance: TOCILIZUMAB
     Indication: Rheumatoid arthritis
     Dosage: 680 MG, Q4W
     Route: 065
  170. TOCILIZUMAB [Suspect]
     Active Substance: TOCILIZUMAB
     Dosage: 360 MG, QMO
     Route: 065
  171. TOCILIZUMAB [Suspect]
     Active Substance: TOCILIZUMAB
     Dosage: 380 MG
     Route: 065
  172. TOCILIZUMAB [Suspect]
     Active Substance: TOCILIZUMAB
     Dosage: 680 MG
     Route: 065
  173. TOCILIZUMAB [Suspect]
     Active Substance: TOCILIZUMAB
     Dosage: 360 MG, QMO
     Route: 065
  174. TOCILIZUMAB [Suspect]
     Active Substance: TOCILIZUMAB
     Dosage: 360 MG
     Route: 065
  175. TOCILIZUMAB [Suspect]
     Active Substance: TOCILIZUMAB
     Dosage: 360 MG
     Route: 065
  176. TOCILIZUMAB [Suspect]
     Active Substance: TOCILIZUMAB
     Dosage: 360 MG
     Route: 065
  177. TOCILIZUMAB [Suspect]
     Active Substance: TOCILIZUMAB
     Dosage: 680 MG
     Route: 065
  178. TOCILIZUMAB [Suspect]
     Active Substance: TOCILIZUMAB
     Dosage: 680 MG, QMO
     Route: 065
  179. TOCILIZUMAB [Suspect]
     Active Substance: TOCILIZUMAB
     Dosage: 360 MG, QW
     Route: 065
  180. FOSAMAX [Suspect]
     Active Substance: ALENDRONATE SODIUM
     Indication: Rheumatoid arthritis
     Dosage: 70 MG, QW
     Route: 048
  181. CODEINE [Suspect]
     Active Substance: CODEINE
     Indication: Product used for unknown indication
     Dosage: UNK
     Route: 065
  182. GOLD [Suspect]
     Active Substance: GOLD
     Indication: Product used for unknown indication
     Dosage: UNK
     Route: 065
  183. BENADRYL [Concomitant]
     Active Substance: DIPHENHYDRAMINE HYDROCHLORIDE
     Indication: Product used for unknown indication
     Dosage: UNK
     Route: 065
  184. ULORIC [Concomitant]
     Active Substance: FEBUXOSTAT
     Indication: Product used for unknown indication
     Dosage: 80 MG, BID
     Route: 048
  185. OXYCODONE [Concomitant]
     Active Substance: OXYCODONE
     Indication: Product used for unknown indication
     Dosage: UNK
     Route: 065
  186. MOGADAN [Concomitant]
     Indication: Product used for unknown indication
     Dosage: 5 MG
     Route: 048
  187. NITRAZEPAM [Concomitant]
     Active Substance: NITRAZEPAM
     Indication: Product used for unknown indication
     Dosage: 5 MG
     Route: 065
  188. COLCHICINE [Concomitant]
     Active Substance: COLCHICINE
     Indication: Product used for unknown indication
     Dosage: UNK
     Route: 065
  189. DEXILANT [Concomitant]
     Active Substance: DEXLANSOPRAZOLE
     Indication: Product used for unknown indication
     Dosage: UNK
     Route: 048
  190. FEBUXOSTAT [Concomitant]
     Active Substance: FEBUXOSTAT
     Indication: Product used for unknown indication
     Dosage: UNK
     Route: 065
  191. GRAVOL [Concomitant]
     Active Substance: DIMENHYDRINATE
     Indication: Product used for unknown indication
     Dosage: UNK
     Route: 065
  192. FOLIC ACID [Concomitant]
     Active Substance: FOLIC ACID
     Indication: Product used for unknown indication
     Dosage: UNK
     Route: 065
  193. RITUXIMAB [Concomitant]
     Active Substance: RITUXIMAB
     Indication: Product used for unknown indication
     Dosage: UNK
     Route: 065
  194. TOFACITINIB CITRATE [Concomitant]
     Active Substance: TOFACITINIB CITRATE
     Indication: Product used for unknown indication
     Dosage: UNK
     Route: 065

REACTIONS (27)
  - Mobility decreased [Not Recovered/Not Resolved]
  - Musculoskeletal disorder [Not Recovered/Not Resolved]
  - Osteomyelitis [Not Recovered/Not Resolved]
  - Rheumatoid lung [Not Recovered/Not Resolved]
  - Joint swelling [Not Recovered/Not Resolved]
  - Pain [Not Recovered/Not Resolved]
  - Skin ulcer [Not Recovered/Not Resolved]
  - Rheumatoid arthritis [Not Recovered/Not Resolved]
  - Rash [Not Recovered/Not Resolved]
  - Erythema [Not Recovered/Not Resolved]
  - Dermatitis [Not Recovered/Not Resolved]
  - Enthesopathy [Not Recovered/Not Resolved]
  - Nausea [Not Recovered/Not Resolved]
  - Tongue disorder [Not Recovered/Not Resolved]
  - Neoplasm skin [Not Recovered/Not Resolved]
  - Psoriatic arthropathy [Not Recovered/Not Resolved]
  - Synovitis [Not Recovered/Not Resolved]
  - Tendonitis [Not Recovered/Not Resolved]
  - Tenosynovitis [Not Recovered/Not Resolved]
  - C-reactive protein abnormal [Not Recovered/Not Resolved]
  - Intentional product use issue [Not Recovered/Not Resolved]
  - Contraindicated product administered [Not Recovered/Not Resolved]
  - Off label use [Not Recovered/Not Resolved]
  - Therapeutic product effect incomplete [Not Recovered/Not Resolved]
  - Therapeutic product effect decreased [Not Recovered/Not Resolved]
  - Therapeutic response decreased [Not Recovered/Not Resolved]
  - Drug ineffective [Not Recovered/Not Resolved]
